FAERS Safety Report 8199677-7 (Version None)
Quarter: 2012Q1

REPORT INFORMATION
  Report Type: 
  Country: None (occurrence: None)
  Receive Date: 20120311
  Receipt Date: 20120229
  Transmission Date: 20120608
  Serious: Yes (Hospitalization)
  Sender: FDA-Public Use
  Company Number: US-ASTRAZENECA-2012SE03488

PATIENT
  Age: 54 Year
  Sex: Female
  Weight: 117.9 kg

DRUGS (13)
  1. FUROSEMIDE [Concomitant]
     Route: 048
  2. METFORMIN HYDROCHLORIDE [Concomitant]
     Indication: DIABETES MELLITUS
     Route: 048
  3. ZETIA [Concomitant]
     Indication: BLOOD CHOLESTEROL ABNORMAL
     Route: 048
  4. PLAVIX [Concomitant]
     Route: 048
  5. CRESTOR [Suspect]
     Route: 048
     Dates: start: 20110101
  6. DEPAKOTE [Concomitant]
     Indication: BIPOLAR DISORDER
     Route: 048
  7. IMDUR [Concomitant]
     Indication: CARDIAC DISORDER
     Route: 048
  8. LYRICA [Concomitant]
     Indication: DIABETIC NEUROPATHY
     Route: 048
  9. NAPROXEN [Concomitant]
     Indication: PAIN
     Route: 048
  10. FLEXERIL [Concomitant]
     Indication: MUSCLE RELAXANT THERAPY
     Route: 048
  11. DILTIAZER [Concomitant]
     Indication: CARDIAC DISORDER
     Dosage: DAILY
     Route: 048
  12. OXYBUTYNIN [Concomitant]
     Indication: BLADDER DISORDER
     Route: 048
  13. CRESTOR [Suspect]
     Indication: BLOOD CHOLESTEROL ABNORMAL
     Route: 048
     Dates: start: 20060101, end: 20110101

REACTIONS (7)
  - CORONARY ARTERY OCCLUSION [None]
  - MUSCLE SPASMS [None]
  - HEPATIC INFECTION [None]
  - BIPOLAR DISORDER [None]
  - CARDIAC TAMPONADE [None]
  - DRUG DOSE OMISSION [None]
  - OFF LABEL USE [None]
